FAERS Safety Report 4466125-X (Version None)
Quarter: 2004Q3

REPORT INFORMATION
  Report Type: 
  Country: None (occurrence: None)
  Receive Date: 20040930
  Receipt Date: 20040917
  Transmission Date: 20050211
  Serious: Yes (Hospitalization)
  Sender: FDA-Public Use
  Company Number: 2004234470DE

PATIENT
  Sex: Female

DRUGS (1)
  1. ZYVOX [Suspect]
     Indication: SEPSIS
     Dosage: 600 MG, QD, IV
     Route: 042
     Dates: start: 20040912

REACTIONS (1)
  - JAUNDICE CHOLESTATIC [None]
